FAERS Safety Report 5041519-2 (Version None)
Quarter: 2006Q2

REPORT INFORMATION
  Report Type: 
  Country: None (occurrence: None)
  Receive Date: 20060627
  Receipt Date: 20060613
  Transmission Date: 20061013
  Serious: Yes (Other)
  Sender: FDA-Public Use
  Company Number: 2006077903

PATIENT
  Age: 29 Year
  Sex: Female

DRUGS (12)
  1. PREDNISONE TAB [Suspect]
     Indication: GRAFT VERSUS HOST DISEASE IN SKIN
     Dosage: 5 MG, ORAL
     Route: 048
  2. SERTRALINE [Suspect]
     Indication: ILL-DEFINED DISORDER
  3. TACROLIMUS (TACROLIMUS) [Suspect]
     Indication: GRAFT VERSUS HOST DISEASE IN SKIN
     Dosage: 2 MG
  4. RIBAVIRIN [Suspect]
     Indication: RESPIRATORY SYNCYTIAL VIRUS INFECTION
     Dosage: INHALATION
     Route: 055
  5. VORICONAZOLE (VORICONAZOLE) [Suspect]
     Indication: ILL-DEFINED DISORDER
  6. MOXIFLOXACIN HCL [Suspect]
     Indication: ILL-DEFINED DISORDER
  7. SULFOMETHOXAZOLE W/TRIMETHOPRIM [Concomitant]
  8. NAPROXEN [Concomitant]
  9. FAMOTIDINE [Concomitant]
  10. IMMUNOGLOBULINS [Concomitant]
  11. VALACYCLOVIR HCL [Concomitant]
  12. FOLIC ACID [Concomitant]

REACTIONS (7)
  - CHOLANGITIS [None]
  - GRAFT VERSUS HOST DISEASE [None]
  - GRAFT VERSUS HOST DISEASE IN SKIN [None]
  - HEPATOCELLULAR DAMAGE [None]
  - HEPATOTOXICITY [None]
  - LUNG CONSOLIDATION [None]
  - RHINORRHOEA [None]
